FAERS Safety Report 15427932 (Version 1)
Quarter: 2018Q3

REPORT INFORMATION
  Report Type: Spontaneous
  Country: CA (occurrence: CA)
  Receive Date: 20180926
  Receipt Date: 20180926
  Transmission Date: 20181010
  Serious: Yes (Hospitalization)
  Sender: FDA-Public Use
  Company Number: CA-VISTAPHARM, INC.-VER201809-000883

PATIENT
  Age: 3 Year
  Sex: Male
  Weight: 15 kg

DRUGS (9)
  1. MORPHINE [Suspect]
     Active Substance: MORPHINE
     Dosage: 3 MG (AT 2:30 AM AND 6:30 AM) AND 15 MG (AT 11 AM AND 5:45 PM) [DAY 1]
     Route: 048
  2. NALOXONE [Concomitant]
     Active Substance: NALOXONE
     Indication: PRODUCT USED FOR UNKNOWN INDICATION
     Dosage: 1 MG (AT 1 AM) AND 0.5 MG (AT 5:10 AM) [DAY 2]
     Route: 042
  3. NALOXONE [Concomitant]
     Active Substance: NALOXONE
     Dosage: 0.5 MG
     Route: 042
  4. MORPHINE [Suspect]
     Active Substance: MORPHINE
     Indication: ANALGESIC THERAPY
     Dosage: THREE DOSES OF 3 MG (0.2 MG/KG PER DOSE) [AT 2 PM, 6 PM, AND 10:30 PM] (DAY 0)
     Route: 048
  5. HYDROCODONE AND ACETAMINOPHEN [Concomitant]
     Active Substance: ACETAMINOPHEN\HYDROCODONE
     Indication: ANALGESIC THERAPY
     Dosage: 225 MG (15 MG/KG PER DOSE) (AT 2 PM, 6 PM, AND 10:30 PM) [DAY 0]
     Route: 048
  6. HYDROCODONE AND ACETAMINOPHEN [Concomitant]
     Active Substance: ACETAMINOPHEN\HYDROCODONE
     Dosage: 160 MG IR (INTRARECTAL) (AT 12 AM, 1 AM, 3:40 AM, 5:10 AM, 8 AM, AND 2 PM) [DAY 2]
     Route: 054
  7. HYDROCODONE AND ACETAMINOPHEN [Concomitant]
     Active Substance: ACETAMINOPHEN\HYDROCODONE
     Dosage: 160 MG (AT 4:15 AM, 10:45 AM, 4:15 PM, AND 8:15 PM) [DAY 3]
     Route: 048
  8. HYDROCODONE AND ACETAMINOPHEN [Concomitant]
     Active Substance: ACETAMINOPHEN\HYDROCODONE
     Dosage: 160 MG (AT 4:15 AM AND 8:15 AM) [DAY 4]
     Route: 048
  9. HYDROCODONE AND ACETAMINOPHEN [Concomitant]
     Active Substance: ACETAMINOPHEN\HYDROCODONE
     Dosage: 225 MG (AT 2:30 AM AND 6:30 AM) [DAY 1]
     Route: 048

REACTIONS (10)
  - Overdose [Unknown]
  - Respiratory depression [Unknown]
  - Pneumonia [Unknown]
  - Tremor [Unknown]
  - Poisoning [Unknown]
  - Generalised tonic-clonic seizure [Unknown]
  - Cyanosis [Unknown]
  - Somnolence [Unknown]
  - Tachycardia [Unknown]
  - Miosis [Unknown]
